FAERS Safety Report 17604326 (Version 1)
Quarter: 2020Q1

REPORT INFORMATION
  Report Type: Spontaneous
  Country: US (occurrence: US)
  Receive Date: 20200331
  Receipt Date: 20200331
  Transmission Date: 20200409
  Serious: No
  Sender: FDA-Public Use
  Company Number: US-PFIZER INC-2019460623

PATIENT
  Age: 12 Year
  Sex: Male

DRUGS (3)
  1. PROZAC [Suspect]
     Active Substance: FLUOXETINE HYDROCHLORIDE
     Dosage: 5 MG, 1X/DAY (10MG TABLET IN HALF FOR 5MG, IN ORDER TO TAKE 5MG ONCE EVERY DAY)
  2. GENOTROPIN [Suspect]
     Active Substance: SOMATROPIN
     Indication: GROWTH HORMONE DEFICIENCY
     Dosage: 1 MG, DAILY
  3. PROZAC [Suspect]
     Active Substance: FLUOXETINE HYDROCHLORIDE
     Dosage: 10 MG, 1X/DAY (AT NIGHT)

REACTIONS (3)
  - Insomnia [Unknown]
  - Anxiety [Not Recovered/Not Resolved]
  - Depression [Unknown]
